FAERS Safety Report 20554082 (Version 1)
Quarter: 2022Q1

REPORT INFORMATION
  Report Type: Spontaneous
  Country: US (occurrence: None)
  Receive Date: 20220304
  Receipt Date: 20220304
  Transmission Date: 20220423
  Serious: Yes (Hospitalization)
  Sender: FDA-Public Use
  Company Number: None

PATIENT
  Age: 23 Year
  Sex: Female
  Weight: 87.75 kg

DRUGS (1)
  1. CLOTRIMAZOLE AND BETAMETHASONE DIPROPIONATE [Suspect]
     Active Substance: BETAMETHASONE\BETAMETHASONE DIPROPIONATE\CLOTRIMAZOLE
     Indication: Vulvovaginal discomfort
     Dosage: FREQUENCY : TWICE A DAY;?
     Route: 067

REACTIONS (4)
  - Application site pain [None]
  - Application site exfoliation [None]
  - Dysuria [None]
  - Gait disturbance [None]

NARRATIVE: CASE EVENT DATE: 20220304
